FAERS Safety Report 5962204-6 (Version None)
Quarter: 2008Q4

REPORT INFORMATION
  Report Type: 
  Country: None (occurrence: None)
  Receive Date: 20081121
  Receipt Date: 20081113
  Transmission Date: 20090506
  Serious: Yes (Other)
  Sender: FDA-Public Use
  Company Number: PHHY2008CA17744

PATIENT
  Sex: Female

DRUGS (10)
  1. ACLASTA [Suspect]
     Indication: OSTEOPOROSIS
     Dosage: UNK
     Dates: start: 20080806
  2. ACLASTA [Suspect]
     Dosage: UNK
     Dates: start: 20080101
  3. RABEPRAZOLE SODIUM [Concomitant]
     Dosage: 1 CAPSULE AT BREAKFAST
     Route: 048
     Dates: start: 20080108
  4. COUMADIN [Concomitant]
     Dosage: 4 MG, 1 CAP QD/PRN
     Route: 048
     Dates: start: 20080108
  5. COUMADIN [Concomitant]
     Dosage: 5 MG, 1 CAP BID/PRN
     Route: 048
     Dates: start: 20080108
  6. PROCTOSEDYL [Concomitant]
     Dosage: 1 APPLICATION QID/PRN
     Route: 054
     Dates: start: 20080108
  7. CALCIUM CITRATE -VITAMIN D [Concomitant]
     Dosage: 1 DF, BID
     Route: 048
     Dates: start: 20080915
  8. CHAMPIX [Concomitant]
     Dosage: 1 DF, BID
     Route: 048
     Dates: start: 20080915
  9. EFFEXOR XR [Concomitant]
     Dosage: 1 DF, QD
     Route: 048
     Dates: start: 20081027
  10. EFFEXOR XR [Concomitant]
     Dosage: 1 DF, Q48H
     Route: 048

REACTIONS (8)
  - ASTHENIA [None]
  - CHILLS [None]
  - DYSPNOEA [None]
  - FATIGUE [None]
  - HEADACHE [None]
  - MYALGIA [None]
  - POOR VENOUS ACCESS [None]
  - SYNCOPE [None]
